FAERS Safety Report 16559741 (Version 2)
Quarter: 2019Q3

REPORT INFORMATION
  Report Type: Spontaneous
  Country: CN (occurrence: CN)
  Receive Date: 20190711
  Receipt Date: 20190824
  Transmission Date: 20191004
  Serious: Yes (Life-Threatening)
  Sender: FDA-Public Use
  Company Number: PHHY2019CN159882

PATIENT
  Age: 52 Year
  Sex: Male

DRUGS (1)
  1. TEGRETOL [Suspect]
     Active Substance: CARBAMAZEPINE
     Indication: PRODUCT USED FOR UNKNOWN INDICATION
     Dosage: UNK
     Route: 048

REACTIONS (15)
  - Eosinophil percentage increased [Unknown]
  - Pruritus [Unknown]
  - Respiratory depression [Unknown]
  - Gamma-glutamyltransferase increased [Unknown]
  - Mean platelet volume decreased [Unknown]
  - Lymphocyte count decreased [Unknown]
  - Alanine aminotransferase increased [Unknown]
  - Neutrophil percentage increased [Unknown]
  - Blood lactate dehydrogenase increased [Unknown]
  - Erythema [Unknown]
  - Bilirubin conjugated increased [Unknown]
  - Pain [Unknown]
  - Blood albumin increased [Unknown]
  - Apolipoprotein A-I decreased [Unknown]
  - Aspartate aminotransferase increased [Unknown]

NARRATIVE: CASE EVENT DATE: 20190707
